FAERS Safety Report 14788443 (Version 3)
Quarter: 2018Q2

REPORT INFORMATION
  Report Type: Report from Study
  Country: IT (occurrence: IT)
  Receive Date: 20180423
  Receipt Date: 20180514
  Transmission Date: 20180711
  Serious: Yes (Other)
  Sender: FDA-Public Use
  Company Number: IT-ROCHE-2106397

PATIENT
  Age: 10 Year
  Sex: Male
  Weight: 50 kg

DRUGS (13)
  1. PARACETAMOL [Concomitant]
     Active Substance: ACETAMINOPHEN
     Indication: HAEMARTHROSIS
     Route: 048
     Dates: start: 20180216, end: 20180227
  2. PARACETAMOL [Concomitant]
     Active Substance: ACETAMINOPHEN
     Indication: GROIN PAIN
     Route: 048
     Dates: start: 20180206, end: 20180206
  3. FLUBASON [Concomitant]
     Active Substance: DESOXIMETASONE
     Indication: ERYTHEMA
     Route: 061
     Dates: start: 20180127, end: 20180202
  4. CONTRAMAL [Concomitant]
     Active Substance: TRAMADOL HYDROCHLORIDE
     Indication: ARTHRALGIA
     Route: 048
     Dates: start: 20180410, end: 20180410
  5. PARACETAMOL [Concomitant]
     Active Substance: ACETAMINOPHEN
     Route: 048
     Dates: start: 20180324, end: 20180326
  6. PARACETAMOL [Concomitant]
     Active Substance: ACETAMINOPHEN
     Indication: PAIN IN EXTREMITY
     Route: 048
     Dates: start: 20180301, end: 20180304
  7. PARACETAMOL [Concomitant]
     Active Substance: ACETAMINOPHEN
     Indication: ARTHRALGIA
     Route: 048
     Dates: start: 20180308, end: 20180314
  8. EMICIZUMAB. [Suspect]
     Active Substance: EMICIZUMAB-KXWH
     Indication: FACTOR VIII DEFICIENCY
     Dosage: ON 19/JAN/2018, THE PATIENT RECEIVED THE FIRST MAINTENANCE DOSE OF EMICIZUMAB, 2.02 ML, WHICH WAS AL
     Route: 058
     Dates: start: 20171222
  9. PARACETAMOL [Concomitant]
     Active Substance: ACETAMINOPHEN
     Indication: PAIN IN EXTREMITY
     Route: 048
     Dates: start: 20180126, end: 20180126
  10. PARACETAMOL [Concomitant]
     Active Substance: ACETAMINOPHEN
     Indication: ARTHRALGIA
     Route: 048
     Dates: start: 20180315, end: 20180320
  11. EMICIZUMAB. [Suspect]
     Active Substance: EMICIZUMAB-KXWH
     Dosage: UP-TITRATION
     Route: 058
     Dates: start: 20180222, end: 20180405
  12. PARACETAMOL [Concomitant]
     Active Substance: ACETAMINOPHEN
     Indication: MUSCLE HAEMORRHAGE
     Route: 048
     Dates: start: 20180207, end: 20180208
  13. FACTOR VIIA RECOMBINANT [Concomitant]
     Indication: HAEMARTHROSIS

REACTIONS (1)
  - Neutralising antibodies positive [Not Recovered/Not Resolved]

NARRATIVE: CASE EVENT DATE: 20180216
